FAERS Safety Report 12852235 (Version 2)
Quarter: 2017Q1

REPORT INFORMATION
  Report Type: Spontaneous
  Country: ES (occurrence: ES)
  Receive Date: 20161017
  Receipt Date: 20170330
  Transmission Date: 20170428
  Serious: Yes (Other)
  Sender: FDA-Public Use
  Company Number: ES-PFIZER INC-2016464318

PATIENT
  Age: 37 Year
  Sex: Female

DRUGS (4)
  1. CYTARABINE. [Suspect]
     Active Substance: CYTARABINE
     Dosage: 3 G/M2, DAYS 1, 3 AND 5 (1ST CONSOLIDATION)
     Route: 042
  2. CYTARABINE. [Suspect]
     Active Substance: CYTARABINE
     Indication: ACUTE MYELOID LEUKAEMIA
     Dosage: 200 MG/M2, CL X 7 DAYS
  3. IDARUBICIN HCL [Suspect]
     Active Substance: IDARUBICIN HYDROCHLORIDE
     Indication: ACUTE MYELOID LEUKAEMIA
     Dosage: 12 MG/M2, X 3 DAYS
  4. CYTARABINE. [Suspect]
     Active Substance: CYTARABINE
     Dosage: 3 G/M2, DAYS 1, 3 AND 5 (2ND CONSOLIDATION)
     Route: 042

REACTIONS (11)
  - Hepatotoxicity [Unknown]
  - Gastrointestinal toxicity [Unknown]
  - Ileus [Unknown]
  - Septic shock [Unknown]
  - Haematotoxicity [Unknown]
  - Lower gastrointestinal haemorrhage [Unknown]
  - Fluid retention [Unknown]
  - Abdominal pain [Unknown]
  - Blood albumin decreased [Unknown]
  - Bacteraemia [Unknown]
  - Diarrhoea [Unknown]
